FAERS Safety Report 25350204 (Version 2)
Quarter: 2025Q4

REPORT INFORMATION
  Report Type: Report from Study
  Country: JP (occurrence: JP)
  Receive Date: 20250523
  Receipt Date: 20251024
  Transmission Date: 20260117
  Serious: Yes (Death, Other)
  Sender: UCB
  Company Number: JP-UCBJ-CD202506577UCBPHAPROD

PATIENT
  Age: 74 Year
  Weight: 71.5 kg

DRUGS (1)
  1. ZILUCOPLAN [Suspect]
     Active Substance: ZILUCOPLAN
     Indication: Product used for unknown indication
     Dosage: 23 MILLIGRAM PER DAY

REACTIONS (1)
  - Amyotrophic lateral sclerosis [Fatal]
